FAERS Safety Report 9912719 (Version 1)
Quarter: 2014Q1

REPORT INFORMATION
  Report Type: Spontaneous
  Country: US (occurrence: None)
  Receive Date: 20140218
  Receipt Date: 20140218
  Transmission Date: 20141002
  Serious: Yes (Other)
  Sender: FDA-Public Use
  Company Number: None

PATIENT
  Age: 71 Year
  Sex: Male

DRUGS (1)
  1. AFINITOR, 10 MG, NOVARTIS [Suspect]
     Route: 048
     Dates: start: 20131207, end: 20140214

REACTIONS (6)
  - Drug ineffective [None]
  - Dry mouth [None]
  - Decreased appetite [None]
  - Fatigue [None]
  - Pain [None]
  - Rash [None]
